FAERS Safety Report 23285369 (Version 2)
Quarter: 2024Q1

REPORT INFORMATION
  Report Type: Spontaneous
  Country: JP (occurrence: JP)
  Receive Date: 20231211
  Receipt Date: 20240111
  Transmission Date: 20240410
  Serious: Yes (Life-Threatening)
  Sender: FDA-Public Use
  Company Number: JP-PFIZER INC-PV202300197865

PATIENT
  Age: 77 Year
  Sex: Female
  Weight: 45.9 kg

DRUGS (4)
  1. ATGAM [Suspect]
     Active Substance: EQUINE THYMOCYTE IMMUNE GLOBULIN
     Indication: Aplastic anaemia
     Dosage: 1750 MG
     Route: 041
     Dates: start: 20231128, end: 20231201
  2. CYCLOSPORINE [Concomitant]
     Active Substance: CYCLOSPORINE
     Indication: Aplastic anaemia
     Dosage: 100 MG, 2X/DAY
     Route: 048
     Dates: start: 20231128
  3. MAGNESIUM OXIDE [Concomitant]
     Active Substance: MAGNESIUM OXIDE
     Indication: Constipation
     Dosage: 1980 MG
     Dates: start: 20231128
  4. ACYCLOVIR [Concomitant]
     Active Substance: ACYCLOVIR
     Indication: Prophylaxis
     Dosage: 200 MG
     Dates: start: 20231124

REACTIONS (2)
  - White blood cell count decreased [Unknown]
  - Condition aggravated [Unknown]

NARRATIVE: CASE EVENT DATE: 20231128
